FAERS Safety Report 26145328 (Version 2)
Quarter: 2025Q4

REPORT INFORMATION
  Report Type: Spontaneous
  Country: US (occurrence: US)
  Receive Date: 20251211
  Receipt Date: 20251230
  Transmission Date: 20260117
  Serious: Yes (Death, Hospitalization, Other)
  Sender: MERCK SHARP & DOHME LLC
  Company Number: US-009507513-2357779

PATIENT
  Age: 68 Year
  Sex: Male

DRUGS (21)
  1. KEYTRUDA [Suspect]
     Active Substance: PEMBROLIZUMAB
     Indication: Lung adenocarcinoma
     Dates: start: 20241017
  2. KEYTRUDA [Suspect]
     Active Substance: PEMBROLIZUMAB
     Indication: Lung adenocarcinoma
     Dosage: TIME INTERVAL: TOTAL: STRENGTH: 100 MG/4 ML; 200 MG, ONCE
     Route: 042
     Dates: start: 20241219, end: 20241219
  3. KEYTRUDA [Suspect]
     Active Substance: PEMBROLIZUMAB
     Indication: Lung adenocarcinoma
     Dosage: TIME INTERVAL: TOTAL: STRENGTH: 100 MG/4 ML; 200 MG, ONCE
     Route: 042
     Dates: start: 20250109, end: 20250109
  4. KEYTRUDA [Suspect]
     Active Substance: PEMBROLIZUMAB
     Indication: Lung adenocarcinoma
     Dosage: TIME INTERVAL: TOTAL: STRENGTH: 100 MG/4 ML; 200 MG, ONCE
     Route: 042
     Dates: start: 20250130, end: 20250130
  5. KEYTRUDA [Suspect]
     Active Substance: PEMBROLIZUMAB
     Indication: Lung adenocarcinoma
     Dosage: TIME INTERVAL: TOTAL: STRENGTH: 100 MG/4 ML; 200 MG, ONCE
     Route: 042
     Dates: start: 20250220, end: 20250220
  6. KEYTRUDA [Suspect]
     Active Substance: PEMBROLIZUMAB
     Indication: Lung adenocarcinoma
     Dosage: TIME INTERVAL: TOTAL: STRENGTH: 100 MG/4 ML; 200 MG, ONCE
     Route: 042
     Dates: start: 20250313, end: 20250313
  7. KEYTRUDA [Suspect]
     Active Substance: PEMBROLIZUMAB
     Indication: Lung adenocarcinoma
     Dosage: TIME INTERVAL: TOTAL: STRENGTH: 100 MG/4 ML; 200 MG, ONCE
     Route: 042
     Dates: start: 20250403, end: 20250403
  8. KEYTRUDA [Suspect]
     Active Substance: PEMBROLIZUMAB
     Indication: Lung adenocarcinoma
     Dosage: TIME INTERVAL: TOTAL: STRENGTH: 100 MG/4 ML; 200 MG, ONCE
     Route: 042
     Dates: start: 20250424, end: 20250424
  9. KEYTRUDA [Suspect]
     Active Substance: PEMBROLIZUMAB
     Indication: Lung adenocarcinoma
     Dosage: TIME INTERVAL: TOTAL: STRENGTH: 100 MG/4 ML; 200 MG, ONCE
     Route: 042
     Dates: start: 20250522, end: 20250522
  10. KEYTRUDA [Suspect]
     Active Substance: PEMBROLIZUMAB
     Indication: Lung adenocarcinoma
     Dosage: TIME INTERVAL: TOTAL: STRENGTH: 100 MG/4 ML; 200 MG, ONCE
     Route: 042
     Dates: start: 20250612, end: 20250612
  11. KEYTRUDA [Suspect]
     Active Substance: PEMBROLIZUMAB
     Indication: Lung adenocarcinoma
     Dosage: TIME INTERVAL: TOTAL: STRENGTH: 100 MG/4 ML; 200 MG, ONCE
     Route: 042
     Dates: start: 20250703, end: 20250703
  12. SODIUM CHLORIDE [Concomitant]
     Active Substance: SODIUM CHLORIDE
     Indication: Medication dilution
     Dosage: TIME INTERVAL: TOTAL: STRENGTH: 0.9%; VOLUME: 100 ML; ONCE
     Route: 042
     Dates: start: 20250109, end: 20250109
  13. SODIUM CHLORIDE [Concomitant]
     Active Substance: SODIUM CHLORIDE
     Indication: Medication dilution
     Dosage: TIME INTERVAL: TOTAL: STRENGTH: 0.9%; VOLUME: 100 ML; ONCE
     Route: 042
     Dates: start: 20250220, end: 20250220
  14. SODIUM CHLORIDE [Concomitant]
     Active Substance: SODIUM CHLORIDE
     Indication: Medication dilution
     Dosage: TIME INTERVAL: TOTAL: STRENGTH: 0.9%; VOLUME: 100 ML; ONCE
     Route: 042
     Dates: start: 20250130, end: 20250130
  15. SODIUM CHLORIDE [Concomitant]
     Active Substance: SODIUM CHLORIDE
     Indication: Medication dilution
     Dosage: TIME INTERVAL: TOTAL: STRENGTH: 0.9%; VOLUME: 100 ML; ONCE
     Route: 042
     Dates: start: 20250313, end: 20250313
  16. SODIUM CHLORIDE [Concomitant]
     Active Substance: SODIUM CHLORIDE
     Indication: Medication dilution
     Dosage: TIME INTERVAL: TOTAL: STRENGTH: 0.9%; VOLUME: 100 ML; ONCE
     Route: 042
     Dates: start: 20250403, end: 20250403
  17. SODIUM CHLORIDE [Concomitant]
     Active Substance: SODIUM CHLORIDE
     Indication: Medication dilution
     Dosage: TIME INTERVAL: TOTAL: STRENGTH: 0.9%; VOLUME: 100 ML; ONCE
     Route: 042
     Dates: start: 20250424, end: 20250424
  18. SODIUM CHLORIDE [Concomitant]
     Active Substance: SODIUM CHLORIDE
     Indication: Medication dilution
     Dosage: TIME INTERVAL: TOTAL: STRENGTH: 0.9%; VOLUME: 100 ML; ONCE
     Route: 042
     Dates: start: 20250522, end: 20250522
  19. SODIUM CHLORIDE [Concomitant]
     Active Substance: SODIUM CHLORIDE
     Indication: Medication dilution
     Dosage: TIME INTERVAL: TOTAL: STRENGTH: 0.9%; VOLUME: 100 ML; ONCE
     Route: 042
     Dates: start: 20250612, end: 20250612
  20. SODIUM CHLORIDE [Concomitant]
     Active Substance: SODIUM CHLORIDE
     Indication: Medication dilution
     Dosage: TIME INTERVAL: TOTAL: STRENGTH: 0.9%; VOLUME: 100 ML; ONCE
     Route: 042
     Dates: start: 20250703, end: 20250703
  21. SODIUM CHLORIDE [Concomitant]
     Active Substance: SODIUM CHLORIDE
     Indication: Medication dilution
     Dosage: TIME INTERVAL: TOTAL: STRENGTH: 0.9%; VOLUME: 100 ML; ONCE
     Route: 042
     Dates: start: 20241219, end: 20241219

REACTIONS (16)
  - Pneumothorax [Fatal]
  - General physical health deterioration [Unknown]
  - Positive airway pressure therapy [Unknown]
  - Heart rate abnormal [Unknown]
  - Respiratory rate increased [Unknown]
  - Small intestinal obstruction [Unknown]
  - Malignant neoplasm progression [Unknown]
  - Chronic obstructive pulmonary disease [Unknown]
  - Alcohol use disorder [Unknown]
  - Acute kidney injury [Unknown]
  - Ascites [Unknown]
  - Malnutrition [Unknown]
  - Pulmonary embolism [Unknown]
  - Acute respiratory failure [Unknown]
  - Hypothyroidism [Unknown]
  - Inappropriate schedule of product administration [Unknown]

NARRATIVE: CASE EVENT DATE: 20250101
